FAERS Safety Report 6957197-9 (Version None)
Quarter: 2010Q3

REPORT INFORMATION
  Report Type: 
  Country: None (occurrence: None)
  Receive Date: 20100831
  Receipt Date: 20100823
  Transmission Date: 20110219
  Serious: No
  Sender: FDA-Public Use
  Company Number: US-BIOGENIDEC-2010BI029440

PATIENT
  Age: 40 Year
  Sex: Female

DRUGS (2)
  1. TYSABRI [Suspect]
     Indication: MULTIPLE SCLEROSIS
     Route: 042
     Dates: start: 20100524, end: 20100524
  2. STEROIDS (NOS) [Concomitant]
     Indication: HEPATIC ENZYME INCREASED
     Route: 042

REACTIONS (2)
  - AGEUSIA [None]
  - ASTHENIA [None]
